FAERS Safety Report 9469470 (Version 1)
Quarter: 2013Q3

REPORT INFORMATION
  Report Type: Report from Study
  Country: AR (occurrence: AR)
  Receive Date: 20130822
  Receipt Date: 20130822
  Transmission Date: 20140515
  Serious: Yes (Death, Hospitalization)
  Sender: FDA-Public Use
  Company Number: AR-ROCHE-1264320

PATIENT
  Sex: Female

DRUGS (1)
  1. RANIBIZUMAB [Suspect]
     Indication: DIABETIC RETINOPATHY
     Route: 050

REACTIONS (4)
  - Cardio-respiratory arrest [Fatal]
  - Aspiration bronchial [Unknown]
  - Pneumonia [Unknown]
  - Cerebrovascular accident [Unknown]
